FAERS Safety Report 10389669 (Version 1)
Quarter: 2014Q3

REPORT INFORMATION
  Report Type: Spontaneous
  Country: US (occurrence: US)
  Receive Date: 20140818
  Receipt Date: 20140818
  Transmission Date: 20150326
  Serious: Yes (Other)
  Sender: FDA-Public Use
  Company Number: US-CELGENEUS-163-21880-14081505

PATIENT

DRUGS (3)
  1. REVLIMID [Suspect]
     Active Substance: LENALIDOMIDE
     Dosage: 7.5 MILLIGRAM
     Route: 048
  2. REVLIMID [Suspect]
     Active Substance: LENALIDOMIDE
     Indication: CHRONIC LYMPHOCYTIC LEUKAEMIA
     Dosage: 2.5 MILLIGRAM
     Route: 048
  3. REVLIMID [Suspect]
     Active Substance: LENALIDOMIDE
     Dosage: 5 MILLIGRAM
     Route: 048

REACTIONS (17)
  - Immune thrombocytopenic purpura [Unknown]
  - Cough [Unknown]
  - Dizziness [Unknown]
  - Chronic lymphocytic leukaemia [Unknown]
  - Lymphopenia [Unknown]
  - Diarrhoea [Unknown]
  - Dyspnoea [Unknown]
  - Anaemia [Unknown]
  - Pancytopenia [Unknown]
  - Muscular weakness [Unknown]
  - Transient ischaemic attack [Unknown]
  - Pyrexia [Unknown]
  - Neutropenia [Unknown]
  - Electrolyte imbalance [Unknown]
  - Pain [Unknown]
  - Decreased appetite [Unknown]
  - Fatigue [Unknown]
